FAERS Safety Report 5455778-5 (Version None)
Quarter: 2007Q3

REPORT INFORMATION
  Report Type: 
  Country: None (occurrence: None)
  Receive Date: 20070913
  Receipt Date: 20070913
  Transmission Date: 20080115
  Serious: Yes (Life-Threatening, Hospitalization)
  Sender: FDA-Public Use
  Company Number: None

PATIENT
  Age: 10 Year
  Sex: Female
  Weight: 34 kg

DRUGS (11)
  1. CLOLAR [Suspect]
     Indication: ACUTE MYELOID LEUKAEMIA RECURRENT
     Dosage: 57MG/DAILY/IV
     Route: 042
     Dates: start: 20070801, end: 20070804
  2. HYDROCORTISONE [Concomitant]
  3. ONDANSETRON [Concomitant]
  4. VORICONAZOLE [Concomitant]
  5. ALLOPURINOL [Concomitant]
  6. ACYCLOVIR [Concomitant]
  7. BACTRIM [Concomitant]
  8. CETIRIZINE HCL [Concomitant]
  9. HYDRALAZINE HCL [Concomitant]
  10. CEFEPIME [Concomitant]
  11. MAGNESIUM OXIDE [Concomitant]

REACTIONS (5)
  - CAPILLARY LEAK SYNDROME [None]
  - HEPATIC FUNCTION ABNORMAL [None]
  - HYPOTENSION [None]
  - RENAL IMPAIRMENT [None]
  - TUMOUR LYSIS SYNDROME [None]
